FAERS Safety Report 6214022-1 (Version None)
Quarter: 2009Q2

REPORT INFORMATION
  Report Type: 
  Country: None (occurrence: None)
  Receive Date: 20090604
  Receipt Date: 20090601
  Transmission Date: 20091009
  Serious: Yes (Hospitalization, Other)
  Sender: FDA-Public Use
  Company Number: US-AMGEN-US272283

PATIENT
  Sex: Male
  Weight: 74.5 kg

DRUGS (6)
  1. ARANESP [Suspect]
     Indication: RENAL FAILURE CHRONIC
     Route: 058
     Dates: start: 20051001
  2. COUMADIN [Concomitant]
     Route: 048
  3. ATENOLOL [Concomitant]
     Route: 048
  4. NEXIUM [Concomitant]
     Route: 048
  5. PROSCAR [Concomitant]
     Route: 048
  6. ROCALTROL [Concomitant]
     Route: 048

REACTIONS (6)
  - DIVERTICULUM [None]
  - DYSPNOEA [None]
  - HAEMOGLOBIN DECREASED [None]
  - MYELODYSPLASTIC SYNDROME [None]
  - RESPIRATORY ARREST [None]
  - RESPIRATORY SYNCYTIAL VIRUS TEST POSITIVE [None]
